FAERS Safety Report 12469249 (Version 2)
Quarter: 2016Q3

REPORT INFORMATION
  Report Type: Spontaneous
  Country: FR (occurrence: FR)
  Receive Date: 20160615
  Receipt Date: 20160708
  Transmission Date: 20161109
  Serious: Yes (Hospitalization, Other)
  Sender: FDA-Public Use
  Company Number: FR-009507513-1606FRA003120

PATIENT
  Age: 18 Year
  Sex: Female

DRUGS (1)
  1. NEXPLANON [Suspect]
     Active Substance: ETONOGESTREL
     Indication: CONTRACEPTION
     Dosage: 1 IMPLANT IN HER LEFT ARM
     Route: 059
     Dates: start: 20150226

REACTIONS (3)
  - Peripheral ischaemia [Unknown]
  - Drug dependence [Unknown]
  - Angiopathy [Unknown]

NARRATIVE: CASE EVENT DATE: 2015
